FAERS Safety Report 16867218 (Version 1)
Quarter: 2019Q3

REPORT INFORMATION
  Report Type: Spontaneous
  Country: US (occurrence: US)
  Receive Date: 20190930
  Receipt Date: 20190930
  Transmission Date: 20191005
  Serious: No
  Sender: FDA-Public Use
  Company Number: US-ASTRAZENECA-2019SF31490

PATIENT
  Sex: Female

DRUGS (1)
  1. BYDUREON [Suspect]
     Active Substance: EXENATIDE
     Dosage: ONCE WEEKLY
     Route: 065

REACTIONS (3)
  - Injection site mass [Recovered/Resolved]
  - Injection site pain [Unknown]
  - Insurance issue [Unknown]
